FAERS Safety Report 20525719 (Version 5)
Quarter: 2022Q1

REPORT INFORMATION
  Report Type: Report from Study
  Country: IL (occurrence: None)
  Receive Date: 20220228
  Receipt Date: 20220329
  Transmission Date: 20220423
  Serious: Yes (Hospitalization)
  Sender: FDA-Public Use
  Company Number: IL-Eisai Medical Research-EC-2021-105925

PATIENT
  Age: 37 Year
  Sex: Female
  Weight: 47 kg

DRUGS (14)
  1. LENVATINIB [Suspect]
     Active Substance: LENVATINIB
     Indication: Adenocarcinoma gastric
     Route: 048
     Dates: start: 20211208, end: 20211223
  2. LENVATINIB [Suspect]
     Active Substance: LENVATINIB
     Indication: Oesophageal adenocarcinoma
     Route: 048
     Dates: start: 20220103
  3. PEMBROLIZUMAB [Suspect]
     Active Substance: PEMBROLIZUMAB
     Indication: Adenocarcinoma gastric
     Route: 041
     Dates: start: 20211208, end: 20211208
  4. PEMBROLIZUMAB [Suspect]
     Active Substance: PEMBROLIZUMAB
     Indication: Oesophageal adenocarcinoma
     Route: 041
     Dates: start: 20220131
  5. OXALIPLATIN [Suspect]
     Active Substance: OXALIPLATIN
     Indication: Adenocarcinoma gastric
     Route: 042
     Dates: start: 20211208, end: 20211208
  6. OXALIPLATIN [Suspect]
     Active Substance: OXALIPLATIN
     Indication: Oesophageal adenocarcinoma
     Dosage: UNKNOWN DOSE (REDUCED)
     Route: 042
     Dates: start: 20220103, end: 20220228
  7. FLUOROURACIL [Suspect]
     Active Substance: FLUOROURACIL
     Indication: Adenocarcinoma gastric
     Dosage: UNKNOWN
     Route: 042
     Dates: start: 20211208, end: 20211210
  8. FLUOROURACIL [Suspect]
     Active Substance: FLUOROURACIL
     Indication: Oesophageal adenocarcinoma
     Dosage: DOSE UNKNOWN (BOLUS)
     Route: 040
     Dates: start: 20211208, end: 20211208
  9. FLUOROURACIL [Suspect]
     Active Substance: FLUOROURACIL
     Dosage: DOSE UNKNOWN (BOLUS); REDUCED
     Route: 040
     Dates: start: 20220103, end: 20220228
  10. FLUOROURACIL [Suspect]
     Active Substance: FLUOROURACIL
     Dosage: DOSE UNKNOWN; REDUCED
     Route: 042
     Dates: start: 20220104, end: 20220228
  11. LEUCOVORIN [Suspect]
     Active Substance: LEUCOVORIN
     Indication: Adenocarcinoma gastric
     Dosage: DOSE UNKNOWN
     Route: 042
     Dates: start: 20211208, end: 20211208
  12. LEUCOVORIN [Suspect]
     Active Substance: LEUCOVORIN
     Indication: Oesophageal adenocarcinoma
     Dosage: DOSE UNKNOWN
     Route: 042
     Dates: start: 20220103, end: 20220228
  13. METAMIZOLE [Concomitant]
     Active Substance: METAMIZOLE
     Dates: start: 202105
  14. CANNABIS SATIVA FLOWERING TOP [Concomitant]
     Active Substance: CANNABIS SATIVA FLOWERING TOP
     Dates: start: 202109

REACTIONS (1)
  - Febrile neutropenia [Recovered/Resolved]

NARRATIVE: CASE EVENT DATE: 20211222
